FAERS Safety Report 10241829 (Version 1)
Quarter: 2014Q1

REPORT INFORMATION
  Report Type: Spontaneous
  Country: US (occurrence: None)
  Receive Date: 20140306
  Receipt Date: 20140306
  Transmission Date: 20141002
  Serious: Yes (Hospitalization)
  Sender: FDA-Public Use
  Company Number: 163-21880-13104140

PATIENT
  Age: 71 Year
  Sex: Female

DRUGS (8)
  1. REVLIMID (LENALIDOMIDE) (10 MILLIGRAM, CAPSULES) [Suspect]
     Indication: PLASMA CELL MYELOMA
     Route: 048
     Dates: start: 20130508
  2. ALPRAZOLAM (UNKNOWN) [Concomitant]
  3. DEXAMETHASONE (UNKNOWN) [Concomitant]
  4. METOPROLOL (UNKNOWN) [Concomitant]
  5. OMEPRAZOLE (UNKNOWN) [Concomitant]
  6. PRILOSEC (OMEPRAZOLE) (UNKNOWN) [Concomitant]
  7. SERTRALINE HCL (SERTRALINE HYDROCHLORIDE) (UNKNOWN) [Concomitant]
  8. TRAMADOL (UNKNOWN) [Concomitant]

REACTIONS (3)
  - Influenza [None]
  - Pneumonia [None]
  - Cystitis [None]
